FAERS Safety Report 7911636-5 (Version None)
Quarter: 2011Q4

REPORT INFORMATION
  Report Type: 
  Country: None (occurrence: None)
  Receive Date: 20111114
  Receipt Date: 20111114
  Transmission Date: 20120403
  Serious: Yes (Hospitalization)
  Sender: FDA-Public Use
  Company Number: None

PATIENT
  Age: 52 Year
  Sex: Male
  Weight: 104.32 kg

DRUGS (2)
  1. LEVAQUIN [Suspect]
     Indication: LUNG INFECTION
     Dosage: 500
     Route: 048
     Dates: start: 20110407, end: 20110410
  2. LEVOFLOXACIN [Concomitant]
     Indication: LUNG INFECTION
     Dosage: 500
     Route: 048
     Dates: start: 20110722, end: 20110726

REACTIONS (4)
  - ARTHRALGIA [None]
  - TENDONITIS [None]
  - TENDON RUPTURE [None]
  - FALL [None]
